FAERS Safety Report 6834984-9 (Version None)
Quarter: 2010Q3

REPORT INFORMATION
  Report Type: 
  Country: None (occurrence: None)
  Receive Date: 20100713
  Receipt Date: 20100706
  Transmission Date: 20110219
  Serious: Yes (Hospitalization)
  Sender: FDA-Public Use
  Company Number: US-BIOGENIDEC-2010BI020695

PATIENT
  Age: 58 Year
  Sex: Female

DRUGS (4)
  1. AVONEX [Suspect]
     Indication: MULTIPLE SCLEROSIS
     Route: 030
     Dates: start: 20100201, end: 20100401
  2. AVONEX [Suspect]
     Route: 030
     Dates: start: 19980101
  3. AVONEX [Suspect]
     Route: 030
  4. AVONEX [Suspect]
     Route: 030
     Dates: start: 20100101

REACTIONS (1)
  - KNEE ARTHROPLASTY [None]
